FAERS Safety Report 10040645 (Version 1)
Quarter: 2014Q1

REPORT INFORMATION
  Report Type: Spontaneous
  Country: US (occurrence: US)
  Receive Date: 20140327
  Receipt Date: 20140327
  Transmission Date: 20141002
  Serious: No
  Sender: FDA-Public Use
  Company Number: US-GLAXOSMITHKLINE-A1053418A

PATIENT
  Age: 66 Year
  Sex: Female

DRUGS (6)
  1. TAFINLAR [Suspect]
     Indication: PRODUCT USED FOR UNKNOWN INDICATION
     Dosage: 150MG TWICE PER DAY
     Route: 048
  2. ALEVE [Concomitant]
  3. CALTRATE + D [Concomitant]
  4. LEVOTHYROXIN [Concomitant]
  5. MAGNESIUM [Concomitant]
  6. VITAMIN D [Concomitant]

REACTIONS (1)
  - Tooth fracture [Unknown]
